FAERS Safety Report 4446377-2 (Version None)
Quarter: 2004Q3

REPORT INFORMATION
  Report Type: 
  Country: None (occurrence: None)
  Receive Date: 20040903
  Receipt Date: 20040820
  Transmission Date: 20050211
  Serious: Yes (Hospitalization)
  Sender: FDA-Public Use
  Company Number: 171483

PATIENT
  Age: 43 Year
  Sex: Female
  Weight: 101.6057 kg

DRUGS (4)
  1. AVONEX [Suspect]
     Indication: MULTIPLE SCLEROSIS
     Dosage: 30 MCG QW IM
     Route: 030
     Dates: start: 20020702
  2. ZOLOFT [Concomitant]
  3. DETROL - SLOW RELEASE [Concomitant]
  4. PREMPHASE 14/14 [Concomitant]

REACTIONS (8)
  - BACK PAIN [None]
  - BLOOD VISCOSITY INCREASED [None]
  - INSOMNIA [None]
  - LARYNGITIS [None]
  - MULTIPLE SCLEROSIS [None]
  - MYALGIA [None]
  - PAIN [None]
  - PNEUMONIA [None]
